FAERS Safety Report 20503583 (Version 1)
Quarter: 2022Q1

REPORT INFORMATION
  Report Type: Spontaneous
  Country: US (occurrence: US)
  Receive Date: 20220222
  Receipt Date: 20220222
  Transmission Date: 20220424
  Serious: No
  Sender: FDA-Public Use
  Company Number: US-BAYER-2022A023159

PATIENT
  Age: 31 Year
  Sex: Male

DRUGS (3)
  1. KOGENATE FS [Suspect]
     Active Substance: ANTIHEMOPHILIC FACTOR, HUMAN RECOMBINANT
     Dosage: 3035 U
     Route: 042
  2. KOGENATE FS [Suspect]
     Active Substance: ANTIHEMOPHILIC FACTOR, HUMAN RECOMBINANT
     Dosage: 3035 U, ONCE, INFUSED FOR HIS RIGHT ARM, SHOULDER AND WRIST
     Route: 042
     Dates: start: 20220207, end: 20220207
  3. KOGENATE FS [Suspect]
     Active Substance: ANTIHEMOPHILIC FACTOR, HUMAN RECOMBINANT
     Dosage: 3035 U, ONCE, INFUSED FOR HIS RIGHT ARM, SHOULDER AND WRIST
     Route: 042
     Dates: start: 20220209, end: 20220209

REACTIONS (1)
  - Articular calcification [Not Recovered/Not Resolved]

NARRATIVE: CASE EVENT DATE: 20220209
